FAERS Safety Report 9462170 (Version 1)
Quarter: 2013Q3

REPORT INFORMATION
  Report Type: Spontaneous
  Country: US (occurrence: None)
  Receive Date: 20130813
  Receipt Date: 20130813
  Transmission Date: 20140515
  Serious: Yes (Other)
  Sender: FDA-Public Use
  Company Number: JPI-P-034232

PATIENT
  Age: 72 Year
  Sex: Female
  Weight: 105.24 kg

DRUGS (2)
  1. XYREM (500 MILLIGRAM/MILLILITERS SOLUTION) (SODIUM OXYBATE) [Suspect]
     Indication: INSOMNIA
     Dosage: 6GM (3GM, 2 IN 1 D) ORAL
     Route: 048
     Dates: start: 20040611
  2. UNSPECIFIED MEDICATIONS [Concomitant]

REACTIONS (4)
  - Spinal column stenosis [None]
  - Nerve block [None]
  - Gait disturbance [None]
  - Procedural pain [None]
